FAERS Safety Report 10170518 (Version 1)
Quarter: 2014Q2

REPORT INFORMATION
  Report Type: Report from Study
  Country: TH (occurrence: TH)
  Receive Date: 20140513
  Receipt Date: 20140513
  Transmission Date: 20141212
  Serious: Yes (Death)
  Sender: FDA-Public Use
  Company Number: PHHY2014TH057192

PATIENT
  Age: 94 Year
  Sex: Male

DRUGS (1)
  1. ZOMETA [Suspect]
     Indication: METASTASES TO BONE
     Dosage: 4 MG/ TIME, EVERY 3 MONTHS
     Route: 041

REACTIONS (3)
  - Lung infection [Fatal]
  - Procedural complication [Fatal]
  - Choking [Fatal]
